FAERS Safety Report 13665568 (Version 1)
Quarter: 2017Q2

REPORT INFORMATION
  Report Type: Spontaneous
  Country: US (occurrence: US)
  Receive Date: 20170619
  Receipt Date: 20170619
  Transmission Date: 20170830
  Serious: No
  Sender: FDA-Public Use
  Company Number: US-LNK INTERNATIONAL, INC.-2022233

PATIENT
  Sex: Female

DRUGS (2)
  1. PLAVIX [Concomitant]
     Active Substance: CLOPIDOGREL BISULFATE
  2. DG HEALTH ASPIRIN [Suspect]
     Active Substance: ASPIRIN
     Indication: HEADACHE

REACTIONS (2)
  - Vomiting [None]
  - Nausea [None]
